FAERS Safety Report 21033893 (Version 2)
Quarter: 2023Q1

REPORT INFORMATION
  Report Type: Spontaneous
  Country: US (occurrence: US)
  Receive Date: 20220701
  Receipt Date: 20230220
  Transmission Date: 20230418
  Serious: No
  Sender: FDA-Public Use
  Company Number: US-ALLERGAN-2210344US

PATIENT

DRUGS (2)
  1. OZURDEX [Suspect]
     Active Substance: DEXAMETHASONE
     Indication: Product used for unknown indication
     Dosage: 0.7 MG, SINGLE
     Route: 031
  2. DURYSTA [Suspect]
     Active Substance: BIMATOPROST
     Indication: Open angle glaucoma
     Dosage: 10 ?G, SINGLE
     Route: 031

REACTIONS (1)
  - Contraindicated product administered [Unknown]
